FAERS Safety Report 21148916 (Version 2)
Quarter: 2022Q3

REPORT INFORMATION
  Report Type: Spontaneous
  Country: US (occurrence: US)
  Receive Date: 20220729
  Receipt Date: 20220817
  Transmission Date: 20221027
  Serious: Yes (Life-Threatening)
  Sender: FDA-Public Use
  Company Number: US-PFIZER INC-202201017802

PATIENT
  Age: 72 Year
  Sex: Female
  Weight: 69.85 kg

DRUGS (8)
  1. TOVIAZ [Suspect]
     Active Substance: FESOTERODINE FUMARATE
     Indication: Hypertonic bladder
     Dosage: UNK
  2. GABAPENTIN [Concomitant]
     Active Substance: GABAPENTIN
     Indication: Neuropathy peripheral
     Dosage: 100MG DAILY 1-3 CAPSULES AT BEDTIME
     Dates: start: 20191230
  3. JARDIANCE [Concomitant]
     Active Substance: EMPAGLIFLOZIN
     Indication: Diabetes mellitus
     Dosage: 25 MG, 1X/DAY
     Dates: start: 20211220
  4. METOPROLOL SUCCINATE [Concomitant]
     Active Substance: METOPROLOL SUCCINATE
     Indication: Hypertension
     Dosage: 25 MG, 1X/DAY
     Dates: start: 20211221
  5. QUINAPRIL [QUINAPRIL HYDROCHLORIDE] [Concomitant]
     Indication: Hypertension
     Dosage: 20 MG, DAILY
     Dates: start: 20210603
  6. PROTONIX [Concomitant]
     Active Substance: PANTOPRAZOLE SODIUM
     Indication: Reflux gastritis
     Dosage: 40 MG, DAILY
     Dates: start: 20220314
  7. ROSUVASTATIN [Concomitant]
     Active Substance: ROSUVASTATIN
     Indication: Hyperlipidaemia
     Dosage: 20 MG, DAILY
     Dates: start: 20190909
  8. NOVOLOG [Concomitant]
     Active Substance: INSULIN ASPART
     Indication: Diabetes mellitus
     Dosage: SLIDING SCALE DOSE
     Dates: start: 20220708

REACTIONS (3)
  - Pancreatic carcinoma [Unknown]
  - Plasma cell myeloma [Unknown]
  - Pain [Unknown]
